FAERS Safety Report 5007389-3 (Version None)
Quarter: 2006Q2

REPORT INFORMATION
  Report Type: 
  Country: None (occurrence: None)
  Receive Date: 20060518
  Receipt Date: 20060518
  Transmission Date: 20061013
  Serious: Yes (Hospitalization)
  Sender: FDA-Public Use
  Company Number: None

PATIENT
  Age: 78 Year
  Sex: Male
  Weight: 95.7 kg

DRUGS (6)
  1. TARCEVA [Suspect]
  2. OXYCODONE HCL [Concomitant]
  3. RANITIDINE HCL [Concomitant]
  4. PROCHLORPERAZINE [Concomitant]
  5. MULTIVITAMINS/MINERALS THERAPEUT CAP [Concomitant]
  6. SENNOSIDES [Concomitant]

REACTIONS (1)
  - URTICARIA [None]
